FAERS Safety Report 9441861 (Version 1)
Quarter: 2013Q3

REPORT INFORMATION
  Report Type: Spontaneous
  Country: US (occurrence: US)
  Receive Date: 20130806
  Receipt Date: 20130806
  Transmission Date: 20140515
  Serious: Yes (Other)
  Sender: FDA-Public Use
  Company Number: US-AMGEN-USASP2013053758

PATIENT
  Sex: Female

DRUGS (1)
  1. PROLIA [Suspect]
     Indication: PRODUCT USED FOR UNKNOWN INDICATION
     Dosage: 60 MG, Q6MO
     Route: 065

REACTIONS (4)
  - Swelling face [Recovered/Resolved]
  - Face oedema [Recovered/Resolved]
  - Urticaria [Recovered/Resolved]
  - Pruritus [Recovered/Resolved]
